FAERS Safety Report 9783954 (Version 2)
Quarter: 2014Q1

REPORT INFORMATION
  Report Type: Spontaneous
  Country: DK (occurrence: DK)
  Receive Date: 20131226
  Receipt Date: 20140106
  Transmission Date: 20141002
  Serious: Yes (Other)
  Sender: FDA-Public Use
  Company Number: DK-PFIZER INC-2013364370

PATIENT
  Age: 35 Year
  Sex: Female

DRUGS (1)
  1. DEPO-MEDROL [Suspect]
     Indication: PAIN IN EXTREMITY
     Dosage: UNK

REACTIONS (5)
  - Fascial rupture [Recovered/Resolved]
  - Connective tissue disorder [Unknown]
  - Pain in extremity [Not Recovered/Not Resolved]
  - Paraesthesia [Unknown]
  - Oedema peripheral [Recovered/Resolved]
